FAERS Safety Report 8802252 (Version 1)
Quarter: 2012Q4

REPORT INFORMATION
  Report Type: 
  Country: US (occurrence: US)
  Receive Date: 20120921
  Receipt Date: 20120921
  Transmission Date: 20130627
  Serious: No
  Sender: FDA-Public Use
  Company Number: US-009507513-1209USA003996

PATIENT
  Sex: Female

DRUGS (2)
  1. ZIOPTAN [Suspect]
     Dosage: UNK UNK,
     Route: 047
  2. XALATAN [Suspect]
     Dosage: 2 Gtt, qd
     Route: 047

REACTIONS (7)
  - Blepharospasm [Unknown]
  - Eye infection [Unknown]
  - Growth of eyelashes [Unknown]
  - Ocular hyperaemia [Unknown]
  - Headache [Unknown]
  - Eyelid oedema [Unknown]
  - Eye irritation [Unknown]
